FAERS Safety Report 8112099-X (Version None)
Quarter: 2011Q4

REPORT INFORMATION
  Report Type: 
  Country: None (occurrence: None)
  Receive Date: 20111223
  Receipt Date: 20101115
  Transmission Date: 20120403
  Serious: Yes (Other)
  Sender: FDA-Public Use
  Company Number: PHHY2010US77783

PATIENT

DRUGS (1)
  1. FEMARA [Suspect]

REACTIONS (1)
  - WEIGHT INCREASED [None]
